FAERS Safety Report 9718462 (Version 1)
Quarter: 2013Q4

REPORT INFORMATION
  Report Type: Not Available
  Country: US (occurrence: US)
  Receive Date: 20131125
  Receipt Date: 20131125
  Transmission Date: 20140711
  Serious: No
  Sender: FDA-Public Use
  Company Number: US-VIVUS-2013V1000633

PATIENT
  Age: 38 Year
  Sex: Female

DRUGS (5)
  1. QSYMIA 7.5MG/46MG [Suspect]
     Indication: WEIGHT DECREASED
     Route: 048
     Dates: start: 20130827
  2. QSYMIA 3.75MG/23MG [Suspect]
     Indication: WEIGHT DECREASED
     Route: 048
     Dates: start: 20130813, end: 20130826
  3. LEVOTHYROXIN [Concomitant]
     Indication: THYROID DISORDER
     Dosage: STARTED 3 YEARS AGO
     Route: 048
     Dates: start: 2010
  4. CITALOPRAM [Concomitant]
     Indication: DEPRESSION
     Dosage: STARTED 10 YEARS AGO
     Dates: start: 2003
  5. DEPO PROVERA [Concomitant]
     Indication: ENDOMETRIOSIS

REACTIONS (1)
  - Fatigue [Not Recovered/Not Resolved]
